FAERS Safety Report 11192598 (Version 1)
Quarter: 2015Q2

REPORT INFORMATION
  Report Type: Spontaneous
  Country: US (occurrence: US)
  Receive Date: 20150616
  Receipt Date: 20150616
  Transmission Date: 20150821
  Serious: No
  Sender: FDA-Public Use
  Company Number: US-TEVA-569953USA

PATIENT
  Sex: Female

DRUGS (1)
  1. COPAXONE [Suspect]
     Active Substance: GLATIRAMER ACETATE
     Indication: MULTIPLE SCLEROSIS
     Dates: start: 2015

REACTIONS (6)
  - Anxiety [Unknown]
  - Stomatitis [Unknown]
  - Injection related reaction [Unknown]
  - Chills [Unknown]
  - Heart rate increased [Unknown]
  - Blister [Unknown]
